FAERS Safety Report 4772135-5 (Version None)
Quarter: 2005Q3

REPORT INFORMATION
  Report Type: 
  Country: None (occurrence: None)
  Receive Date: 20050916
  Receipt Date: 20050913
  Transmission Date: 20060218
  Serious: Yes (Death)
  Sender: FDA-Public Use
  Company Number: 23100229

PATIENT
  Age: 41 Year
  Sex: Male

DRUGS (1)
  1. ARGATROBAN [Suspect]
     Indication: CEREBRAL ISCHAEMIA

REACTIONS (2)
  - ARTERY DISSECTION [None]
  - SUBARACHNOID HAEMORRHAGE [None]
